FAERS Safety Report 15057183 (Version 1)
Quarter: 2018Q2

REPORT INFORMATION
  Report Type: Spontaneous
  Country: US (occurrence: US)
  Receive Date: 20180604
  Receipt Date: 20180604
  Transmission Date: 20180711
  Serious: Yes (Hospitalization)
  Sender: FDA-Public Use
  Company Number: None

PATIENT
  Age: 63 Year
  Sex: Male
  Weight: 62 kg

DRUGS (2)
  1. NEXAVAR [Suspect]
     Active Substance: SORAFENIB
     Indication: HEPATOCELLULAR CARCINOMA
     Route: 048
     Dates: start: 20171130, end: 20180126
  2. RIFAXIMIN. [Concomitant]
     Active Substance: RIFAXIMIN

REACTIONS (6)
  - Rectal haemorrhage [None]
  - Thrombocytopenia [None]
  - Anaemia [None]
  - Gastrointestinal haemorrhage [None]
  - Epistaxis [None]
  - Mouth haemorrhage [None]

NARRATIVE: CASE EVENT DATE: 20180126
